FAERS Safety Report 24204866 (Version 1)
Quarter: 2024Q3

REPORT INFORMATION
  Report Type: Report from Study
  Country: US (occurrence: US)
  Receive Date: 20240813
  Receipt Date: 20240813
  Transmission Date: 20241016
  Serious: No
  Sender: DR REDDYS
  Company Number: US-E2BLSMVVAL-CLI/USA/24/0011606

PATIENT
  Age: 8 Year
  Sex: Female
  Weight: 19 kg

DRUGS (2)
  1. JAVYGTOR [Suspect]
     Active Substance: SAPROPTERIN DIHYDROCHLORIDE
     Indication: Phenylketonuria
     Dosage: 4 TABLETS ONCE DAILY
     Route: 048
  2. MULTIVITAMIN GUMMY BEARS [Concomitant]
     Indication: Product used for unknown indication

REACTIONS (2)
  - Allergy to arthropod bite [Unknown]
  - Weight decreased [Unknown]
